FAERS Safety Report 16798643 (Version 1)
Quarter: 2019Q3

REPORT INFORMATION
  Report Type: Spontaneous
  Country: US (occurrence: US)
  Receive Date: 20190722
  Receipt Date: 20190722
  Transmission Date: 20191005
  Serious: Yes (Other)
  Sender: FDA-Public Use
  Company Number: None

PATIENT
  Age: 57 Year
  Sex: Female
  Weight: 103.2 kg

DRUGS (3)
  1. MICONAZOLE (MONISTAT) 2% CREAM [Concomitant]
  2. AFINITOR [Suspect]
     Active Substance: EVEROLIMUS
     Indication: ENDOMETRIAL CANCER
     Route: 048
     Dates: start: 201902, end: 20190624
  3. LETROZOLE (FEMARA) 2.5MG TABLET [Concomitant]

REACTIONS (5)
  - Pneumonitis [None]
  - Sepsis [None]
  - Computerised tomogram abnormal [None]
  - Cough [None]
  - Chest X-ray abnormal [None]

NARRATIVE: CASE EVENT DATE: 20190312
